FAERS Safety Report 14054085 (Version 1)
Quarter: 2017Q4

REPORT INFORMATION
  Report Type: Report from Study
  Country: US (occurrence: US)
  Receive Date: 20171005
  Receipt Date: 20171005
  Transmission Date: 20180321
  Serious: Yes (Hospitalization)
  Sender: FDA-Public Use
  Company Number: US-009507513-1709USA012868

PATIENT
  Age: 57 Year
  Sex: Male
  Weight: 104.76 kg

DRUGS (32)
  1. DULERA [Concomitant]
     Active Substance: FORMOTEROL FUMARATE DIHYDRATE\MOMETASONE FUROATE
  2. FINASTERIDE. [Concomitant]
     Active Substance: FINASTERIDE
  3. LORATADINE. [Concomitant]
     Active Substance: LORATADINE
  4. PANTOPRAZOLE [Concomitant]
     Active Substance: PANTOPRAZOLE
  5. PRAZOSIN. [Concomitant]
     Active Substance: PRAZOSIN
  6. QUETIAPINE FUMARATE. [Concomitant]
     Active Substance: QUETIAPINE FUMARATE
  7. ZEPATIER [Suspect]
     Active Substance: ELBASVIR\GRAZOPREVIR
     Indication: HEPATITIS C
     Dosage: 1 TABLET, QD
     Route: 048
     Dates: start: 20170227
  8. AZITHROMYCIN ANHYDROUS. [Concomitant]
     Active Substance: AZITHROMYCIN ANHYDROUS
  9. ALBUTEROL. [Concomitant]
     Active Substance: ALBUTEROL
  10. GLIPIZIDE. [Concomitant]
     Active Substance: GLIPIZIDE
  11. LISINOPRIL. [Concomitant]
     Active Substance: LISINOPRIL
  12. SPIRIVA RESPIMAT [Concomitant]
     Active Substance: TIOTROPIUM BROMIDE
  13. PREDNISONE. [Concomitant]
     Active Substance: PREDNISONE
  14. ASPIRIN. [Concomitant]
     Active Substance: ASPIRIN
  15. METFORMIN [Concomitant]
     Active Substance: METFORMIN HYDROCHLORIDE
  16. METHOCARBAMOL. [Concomitant]
     Active Substance: METHOCARBAMOL
  17. NICOTINE. [Concomitant]
     Active Substance: NICOTINE
  18. CLEOCIN T [Concomitant]
     Active Substance: CLINDAMYCIN PHOSPHATE
  19. MAGNESIUM OXIDE. [Concomitant]
     Active Substance: MAGNESIUM OXIDE
  20. ATORVASTATIN [Concomitant]
     Active Substance: ATORVASTATIN
  21. BUSPIRONE HYDROCHLORIDE. [Concomitant]
     Active Substance: BUSPIRONE HYDROCHLORIDE
  22. NORCO [Concomitant]
     Active Substance: ACETAMINOPHEN\HYDROCODONE BITARTRATE
  23. MUPIROCIN. [Concomitant]
     Active Substance: MUPIROCIN
  24. VENTOLIN HFA [Concomitant]
     Active Substance: ALBUTEROL SULFATE
  25. DICYCLOMINE HYDROCHLORIDE. [Concomitant]
     Active Substance: DICYCLOMINE HYDROCHLORIDE
  26. FLUTICASONE. [Concomitant]
     Active Substance: FLUTICASONE
  27. GABAPENTIN. [Concomitant]
     Active Substance: GABAPENTIN
  28. LATUDA [Concomitant]
     Active Substance: LURASIDONE HYDROCHLORIDE
  29. MONTELUKAST [Concomitant]
     Active Substance: MONTELUKAST SODIUM
  30. NAPROXEN. [Concomitant]
     Active Substance: NAPROXEN
  31. NITROGLYCERIN. [Concomitant]
     Active Substance: NITROGLYCERIN
  32. OMEGA-3 MARINE TRIGLYCERIDES [Concomitant]
     Active Substance: FISH OIL

REACTIONS (2)
  - Dyspnoea [Unknown]
  - Productive cough [Unknown]

NARRATIVE: CASE EVENT DATE: 2017
